FAERS Safety Report 5565412-1 (Version None)
Quarter: 2007Q4

REPORT INFORMATION
  Report Type: 
  Country: None (occurrence: None)
  Receive Date: 20071218
  Receipt Date: 20071206
  Transmission Date: 20080405
  Serious: Yes (Hospitalization)
  Sender: FDA-Public Use
  Company Number: US-ELI_LILLY_AND_COMPANY-US200711002462

PATIENT
  Age: 39 Year
  Sex: Female

DRUGS (2)
  1. CYMBALTA [Suspect]
     Indication: DEPRESSION
     Dosage: 60 MG, DAILY (1/D)
     Dates: start: 20070101, end: 20070101
  2. TOPAMAX [Concomitant]
     Dosage: 1 D/F, UNK

REACTIONS (1)
  - CONVULSION [None]
